FAERS Safety Report 19768021 (Version 1)
Quarter: 2021Q3

REPORT INFORMATION
  Report Type: Spontaneous
  Country: US (occurrence: US)
  Receive Date: 20210831
  Receipt Date: 20210831
  Transmission Date: 20211014
  Serious: Yes (Death, Other)
  Sender: FDA-Public Use
  Company Number: US-HIKMA PHARMACEUTICALS USA INC.-US-H14001-21-03844

PATIENT

DRUGS (2)
  1. RIBOCICLIB. [Suspect]
     Active Substance: RIBOCICLIB
     Indication: DEDIFFERENTIATED LIPOSARCOMA
     Dosage: 21/28 DAYS
     Route: 065
  2. EVEROLIMUS. [Suspect]
     Active Substance: EVEROLIMUS
     Indication: DEDIFFERENTIATED LIPOSARCOMA
     Dosage: IN 28 DAY CYCLES
     Route: 065

REACTIONS (1)
  - Myocardial infarction [Fatal]
